FAERS Safety Report 14339842 (Version 3)
Quarter: 2018Q1

REPORT INFORMATION
  Report Type: Spontaneous
  Country: ES (occurrence: ES)
  Receive Date: 20171230
  Receipt Date: 20180212
  Transmission Date: 20180509
  Serious: Yes (Hospitalization, Other)
  Sender: FDA-Public Use
  Company Number: ES-MYLANLABS-2017M1082975

PATIENT
  Age: 46 Year

DRUGS (3)
  1. TACROLIMUS. [Suspect]
     Active Substance: TACROLIMUS
     Dosage: DOSAGE INCREASED
     Route: 065
     Dates: start: 20161107, end: 20161110
  2. TACROLIMUS. [Suspect]
     Active Substance: TACROLIMUS
     Indication: PRODUCT USED FOR UNKNOWN INDICATION
     Dosage: DOSE REDUCED TO 50 %
  3. GENVOYA [Interacting]
     Active Substance: COBICISTAT\ELVITEGRAVIR\EMTRICITABINE\TENOFOVIR ALAFENAMIDE FUMARATE
     Indication: HIV INFECTION
     Dosage: UNK

REACTIONS (9)
  - Blood creatinine increased [Recovering/Resolving]
  - Discomfort [Unknown]
  - Headache [Unknown]
  - Drug interaction [Unknown]
  - Glomerular filtration rate abnormal [Recovering/Resolving]
  - Diarrhoea [Unknown]
  - Blood creatinine abnormal [Recovering/Resolving]
  - Vomiting [Unknown]
  - Overdose [Unknown]

NARRATIVE: CASE EVENT DATE: 20161112
